FAERS Safety Report 18240571 (Version 1)
Quarter: 2020Q3

REPORT INFORMATION
  Report Type: Spontaneous
  Country: FR (occurrence: FR)
  Receive Date: 20200908
  Receipt Date: 20200908
  Transmission Date: 20201103
  Serious: Yes (Life-Threatening)
  Sender: FDA-Public Use
  Company Number: FR-TEVA-2020-FR-1823642

PATIENT
  Age: 78 Year
  Sex: Male
  Weight: 77 kg

DRUGS (10)
  1. COUMADINE [Concomitant]
     Active Substance: WARFARIN SODIUM
  2. NOVORAPID [Concomitant]
     Active Substance: INSULIN ASPART
  3. RENAGEL 800 MG, COMPRIME PELLICULE [Concomitant]
  4. VANCOMYCINE [Suspect]
     Active Substance: VANCOMYCIN
     Indication: SKIN ULCER
     Dosage: DOSE NOT REPORTED
     Route: 042
     Dates: start: 20200725, end: 20200728
  5. LASILIX [Concomitant]
     Active Substance: FUROSEMIDE
  6. ATORVASTATINE [Concomitant]
     Active Substance: ATORVASTATIN
  7. CEFTAZIDIME. [Suspect]
     Active Substance: CEFTAZIDIME
     Indication: SKIN ULCER
     Dosage: DOSE NOT REPORTED
     Route: 042
     Dates: start: 20200725, end: 20200728
  8. LANTUS [Concomitant]
     Active Substance: INSULIN GLARGINE
  9. KARDEGIC [Concomitant]
     Active Substance: ASPIRIN DL-LYSINE
  10. NEBIVOLOL. [Concomitant]
     Active Substance: NEBIVOLOL

REACTIONS (1)
  - Thrombocytopenia [Recovering/Resolving]

NARRATIVE: CASE EVENT DATE: 20200730
